FAERS Safety Report 7592374-8 (Version None)
Quarter: 2011Q3

REPORT INFORMATION
  Report Type: 
  Country: None (occurrence: None)
  Receive Date: 20110706
  Receipt Date: 20110621
  Transmission Date: 20111222
  Serious: Yes (Hospitalization, Other)
  Sender: FDA-Public Use
  Company Number: US-AMGEN-USACT2011031736

PATIENT
  Age: 55 Year
  Sex: Female

DRUGS (5)
  1. LISINOPRIL [Concomitant]
  2. CYCLOPHOSPHAMIDE [Concomitant]
     Indication: BREAST CANCER
     Dosage: 600 MG/M2, UNK
     Route: 042
     Dates: start: 20101215
  3. DOXORUBICIN HCL [Concomitant]
     Indication: BREAST CANCER
     Dosage: 60 MG/M2, UNK
     Dates: start: 20101215
  4. BEVACIZUMAB [Concomitant]
     Indication: BREAST CANCER
     Dosage: UNK UNK, BLINDED
     Route: 042
     Dates: start: 20101215
  5. PEGFILGRASTIM [Suspect]
     Indication: BREAST CANCER
     Dosage: 6 MG, UNK
     Dates: start: 20101215

REACTIONS (5)
  - NAUSEA [None]
  - HYPERTENSION [None]
  - DEHYDRATION [None]
  - HEADACHE [None]
  - THROMBOSIS [None]
